FAERS Safety Report 16442899 (Version 1)
Quarter: 2019Q2

REPORT INFORMATION
  Report Type: Spontaneous
  Country: US (occurrence: US)
  Receive Date: 20190617
  Receipt Date: 20190617
  Transmission Date: 20190711
  Serious: Yes (Other)
  Sender: FDA-Public Use
  Company Number: US-ALLERGAN-1925001US

PATIENT

DRUGS (1)
  1. BOTULINUM TOXIN TYPE A UNK [Suspect]
     Active Substance: BOTULINUM TOXIN TYPE A
     Indication: ANAL FISSURE
     Dosage: UNK, SINGLE

REACTIONS (2)
  - Anal stenosis [Unknown]
  - Off label use [Unknown]
